FAERS Safety Report 15274278 (Version 2)
Quarter: 2018Q3

REPORT INFORMATION
  Report Type: Spontaneous
  Country: US (occurrence: US)
  Receive Date: 20180814
  Receipt Date: 20180814
  Transmission Date: 20181010
  Serious: Yes (Hospitalization, Other)
  Sender: FDA-Public Use
  Company Number: US-AUROBINDO-AUR-APL-2018-040780

PATIENT
  Age: 72 Year
  Sex: Female

DRUGS (4)
  1. SELEXIPAG [Suspect]
     Active Substance: SELEXIPAG
     Indication: PRODUCT USED FOR UNKNOWN INDICATION
     Dosage: 1400 MILLIGRAM, 3 TIMES A DAY
     Route: 048
  2. PROSTACYCLIN [Suspect]
     Active Substance: EPOPROSTENOL
     Indication: PULMONARY ARTERIAL HYPERTENSION
     Dosage: 6 NG/KG/MIN
     Route: 042
  3. PROSTACYCLIN [Suspect]
     Active Substance: EPOPROSTENOL
     Dosage: 1 NG/KG/MIN EVERY 30 MINUTES UNTIL THE GOAL RATE OF 6 NG/KG/MIN
     Route: 042
  4. SILDENAFIL 20MG [Suspect]
     Active Substance: SILDENAFIL
     Indication: PULMONARY ARTERIAL HYPERTENSION
     Dosage: 3 DOSAGE FORM, 3 TIMES A DAY
     Route: 065

REACTIONS (2)
  - Right ventricular failure [Unknown]
  - Pulmonary oedema [Recovered/Resolved]
